FAERS Safety Report 6221898-0 (Version None)
Quarter: 2009Q2

REPORT INFORMATION
  Report Type: 
  Country: None (occurrence: None)
  Receive Date: 20090608
  Receipt Date: 20090608
  Transmission Date: 20091009
  Serious: Yes (Hospitalization)
  Sender: FDA-Public Use
  Company Number: None

PATIENT
  Age: 24 Year
  Sex: Female
  Weight: 73 kg

DRUGS (1)
  1. THYMOGLOBULIN [Suspect]
     Dosage: 150 MG OVER 8 HOURS IV DRIP
     Route: 041
     Dates: start: 20090602, end: 20090603

REACTIONS (3)
  - PYREXIA [None]
  - SERUM SICKNESS [None]
  - TACHYCARDIA [None]
